FAERS Safety Report 12892930 (Version 1)
Quarter: 2016Q4

REPORT INFORMATION
  Report Type: Spontaneous
  Country: US (occurrence: US)
  Receive Date: 20161028
  Receipt Date: 20161028
  Transmission Date: 20170207
  Serious: Yes (Other)
  Sender: FDA-Public Use
  Company Number: US-WEST-WARD PHARMACEUTICALS CORP.-2012P1066648

PATIENT
  Age: 34 Year
  Sex: Male

DRUGS (3)
  1. INFUMORPH [Suspect]
     Active Substance: MORPHINE SULFATE
     Route: 040
     Dates: start: 201301
  2. INFUMORPH [Suspect]
     Active Substance: MORPHINE SULFATE
     Indication: PAIN
     Dosage: 25 MCG/ML
     Route: 037
     Dates: start: 201208
  3. INFUMORPH [Suspect]
     Active Substance: MORPHINE SULFATE
     Indication: LUMBAR RADICULOPATHY
     Dosage: 50 MCG/ML
     Route: 037
     Dates: start: 20070612, end: 201208

REACTIONS (21)
  - Suicidal ideation [Recovered/Resolved]
  - Trichotillomania [Recovered/Resolved]
  - Eye disorder [Recovered/Resolved]
  - Pruritus [Recovered/Resolved]
  - Weight decreased [Recovered/Resolved]
  - Parosmia [Recovered/Resolved]
  - Mobility decreased [Recovered/Resolved]
  - Amnesia [Recovered/Resolved]
  - Muscle contracture [Recovered/Resolved]
  - Tremor [Recovered/Resolved]
  - Nausea [Recovered/Resolved]
  - Vomiting [Recovered/Resolved]
  - Influenza like illness [Recovered/Resolved]
  - Hallucination [Unknown]
  - Drug withdrawal syndrome [Recovered/Resolved]
  - Granuloma [Unknown]
  - Hypersensitivity [Recovered/Resolved]
  - Excoriation [Recovered/Resolved]
  - Pain [Recovered/Resolved]
  - Depression [Recovered/Resolved]
  - Diarrhoea [Recovered/Resolved]

NARRATIVE: CASE EVENT DATE: 2012
